FAERS Safety Report 4673297-0 (Version None)
Quarter: 2005Q2

REPORT INFORMATION
  Report Type: 
  Country: None (occurrence: None)
  Receive Date: 20050524
  Receipt Date: 20050524
  Transmission Date: 20051028
  Serious: Yes (Life-Threatening, Hospitalization)
  Sender: FDA-Public Use
  Company Number: None

PATIENT
  Age: 74 Year
  Sex: Male
  Weight: 94.5 kg

DRUGS (14)
  1. KETOROLAC [Suspect]
     Indication: CHEST WALL PAIN
     Dosage: 60 MG ONCE INTRAMUSCULAR
     Route: 030
     Dates: start: 20050217, end: 20050217
  2. CALCIUM/VITAMIN D [Concomitant]
  3. ALENDRONATE SODIUM [Concomitant]
  4. HYDROCHLOROTHIZIDE [Concomitant]
  5. OMEPRAZOLE [Concomitant]
  6. CARBIDOPA AND LEVODOPA [Concomitant]
  7. PRAZOSIN HCL [Concomitant]
  8. IPRATROPIUM BROMIDE [Concomitant]
  9. ALBUTEROL [Concomitant]
  10. FLUNISOLIDE [Concomitant]
  11. MORPHINE SULFATE [Concomitant]
  12. AMOXICILLIN [Concomitant]
  13. PREDNISONE TAB [Concomitant]
  14. LISINOPRIL [Concomitant]

REACTIONS (3)
  - ANAPHYLACTIC REACTION [None]
  - ASTHMA [None]
  - CYANOSIS [None]
